FAERS Safety Report 19958840 (Version 1)
Quarter: 2021Q4

REPORT INFORMATION
  Report Type: Spontaneous
  Country: CA (occurrence: CA)
  Receive Date: 20211015
  Receipt Date: 20211015
  Transmission Date: 20220303
  Serious: Yes (Hospitalization)
  Sender: FDA-Public Use
  Company Number: CA-PFIZER INC-202101332697

PATIENT
  Age: 34 Year
  Sex: Male
  Weight: 102 kg

DRUGS (3)
  1. PRISTIQ EXTENDED-RELEASE [Suspect]
     Active Substance: DESVENLAFAXINE SUCCINATE
     Indication: Major depression
     Dosage: 50 MG, 1X/DAY
     Route: 048
  2. VENLAFAXINE HYDROCHLORIDE [Suspect]
     Active Substance: VENLAFAXINE HYDROCHLORIDE
     Dosage: 75 MG, 1X/DAY
     Route: 048
  3. QUETIAPINE [Concomitant]
     Active Substance: QUETIAPINE
     Dosage: UNK

REACTIONS (9)
  - Balance disorder [Unknown]
  - Blepharospasm [Unknown]
  - Blood creatine phosphokinase increased [Unknown]
  - Hyperhidrosis [Unknown]
  - Hyperreflexia [Unknown]
  - Memory impairment [Unknown]
  - Myalgia [Unknown]
  - Syncope [Unknown]
  - Tremor [Unknown]
